FAERS Safety Report 11686905 (Version 1)
Quarter: 2015Q4

REPORT INFORMATION
  Report Type: Spontaneous
  Country: US (occurrence: US)
  Receive Date: 20151030
  Receipt Date: 20151030
  Transmission Date: 20160304
  Serious: Yes (Other)
  Sender: FDA-Public Use
  Company Number: US-ELI_LILLY_AND_COMPANY-US201510006532

PATIENT
  Sex: Female

DRUGS (4)
  1. SYNTHROID [Concomitant]
     Active Substance: LEVOTHYROXINE SODIUM
  2. PREVACID [Concomitant]
     Active Substance: LANSOPRAZOLE
  3. TACROLIMUS. [Concomitant]
     Active Substance: TACROLIMUS
  4. INSULIN LISPRO [Suspect]
     Active Substance: INSULIN LISPRO
     Indication: TYPE 1 DIABETES MELLITUS
     Dosage: UNK
     Route: 058

REACTIONS (5)
  - Fluid retention [Unknown]
  - Renal failure [Unknown]
  - Seizure [Unknown]
  - Trigger finger [Unknown]
  - Thyroid disorder [Unknown]
